FAERS Safety Report 6144732-6 (Version None)
Quarter: 2009Q2

REPORT INFORMATION
  Report Type: 
  Country: None (occurrence: None)
  Receive Date: 20090406
  Receipt Date: 20090401
  Transmission Date: 20091009
  Serious: Yes (Other)
  Sender: FDA-Public Use
  Company Number: NL-TEVA-111641ISR

PATIENT
  Sex: Female

DRUGS (3)
  1. COPAXONE [Suspect]
     Indication: MULTIPLE SCLEROSIS
     Route: 058
     Dates: start: 20050216
  2. MEDICINAL MARIHUANA [Concomitant]
  3. GABAPENTIN [Concomitant]

REACTIONS (1)
  - VULVAR DYSPLASIA [None]
